FAERS Safety Report 13727516 (Version 1)
Quarter: 2017Q3

REPORT INFORMATION
  Report Type: Spontaneous
  Country: US (occurrence: US)
  Receive Date: 20170707
  Receipt Date: 20170707
  Transmission Date: 20171127
  Serious: Yes (Hospitalization)
  Sender: FDA-Public Use
  Company Number: None

PATIENT
  Age: 71 Year
  Sex: Male

DRUGS (1)
  1. DIGOXIN. [Suspect]
     Active Substance: DIGOXIN
     Route: 048
     Dates: start: 20151231, end: 20170527

REACTIONS (3)
  - Blood creatinine increased [None]
  - Blood urea increased [None]
  - Toxicity to various agents [None]

NARRATIVE: CASE EVENT DATE: 20170522
